FAERS Safety Report 21146627 (Version 1)
Quarter: 2022Q3

REPORT INFORMATION
  Report Type: Spontaneous
  Country: US (occurrence: US)
  Receive Date: 20220729
  Receipt Date: 20220729
  Transmission Date: 20221027
  Serious: No
  Sender: FDA-Public Use
  Company Number: US-ELI_LILLY_AND_COMPANY-US202206001919

PATIENT
  Sex: Female

DRUGS (2)
  1. ADCIRCA [Suspect]
     Active Substance: TADALAFIL
     Indication: Product used for unknown indication
     Dosage: UNK UNK, UNKNOWN
     Route: 065
  2. TYVASO [Suspect]
     Active Substance: TREPROSTINIL
     Indication: Pulmonary arterial hypertension
     Dosage: UNK UNK, QID (18 BREATH FOUR TIMES A DAY)
     Route: 055
     Dates: start: 202108

REACTIONS (4)
  - Oropharyngeal discomfort [Recovered/Resolved]
  - Sinus disorder [Recovered/Resolved]
  - Bronchial disorder [Recovered/Resolved]
  - Malaise [Recovered/Resolved]
